FAERS Safety Report 13533580 (Version 9)
Quarter: 2019Q3

REPORT INFORMATION
  Report Type: Report from Study
  Country: GB (occurrence: GB)
  Receive Date: 20170510
  Receipt Date: 20190903
  Transmission Date: 20191004
  Serious: Yes (Hospitalization, Other)
  Sender: FDA-Public Use
  Company Number: GB-TAKEDA-2017MPI004076

PATIENT
  Age: 67 Year
  Sex: Male

DRUGS (10)
  1. DECADRON [Suspect]
     Active Substance: DEXAMETHASONE
     Dosage: 20 MILLIGRAM, 2/WEEK
     Route: 048
     Dates: start: 20170208, end: 20170329
  2. CYTOXAN [Suspect]
     Active Substance: CYCLOPHOSPHAMIDE
     Indication: PLASMA CELL MYELOMA
     Dosage: 500 MILLIGRAM, 2/WEEK
     Route: 048
     Dates: start: 20161027, end: 20170124
  3. BORTEZOMIB. [Suspect]
     Active Substance: BORTEZOMIB
     Dosage: UNK
     Route: 058
     Dates: start: 2017, end: 20170407
  4. MELPHALAN. [Suspect]
     Active Substance: MELPHALAN
     Indication: PLASMA CELL MYELOMA
     Dosage: 415 MILLIGRAM, QD
     Route: 042
     Dates: start: 20170516
  5. DECADRON [Suspect]
     Active Substance: DEXAMETHASONE
     Dosage: UNK
     Route: 048
  6. CLODRONATE DISODIUM [Concomitant]
     Active Substance: CLODRONATE DISODIUM
     Dosage: UNK, QD
     Route: 048
  7. DECADRON [Suspect]
     Active Substance: DEXAMETHASONE
     Indication: PLASMA CELL MYELOMA
     Dosage: 20 MILLIGRAM, 2/WEEK
     Route: 048
     Dates: start: 20161027, end: 20170121
  8. BORTEZOMIB. [Suspect]
     Active Substance: BORTEZOMIB
     Indication: PLASMA CELL MYELOMA
     Dosage: 2.75 MILLIGRAM, 2/WEEK
     Route: 058
     Dates: start: 20161027, end: 20170120
  9. BORTEZOMIB. [Suspect]
     Active Substance: BORTEZOMIB
     Dosage: 2.75 MILLIGRAM, 1/WEEK
     Route: 058
     Dates: start: 20170208, end: 20170328
  10. BONEFOS [Concomitant]
     Active Substance: CLODRONATE DISODIUM
     Dosage: UNK, QD
     Route: 048

REACTIONS (5)
  - Platelet count decreased [Recovered/Resolved]
  - Clostridium difficile colitis [Recovered/Resolved]
  - Influenza A virus test positive [Recovered/Resolved]
  - Pneumonia [Recovered/Resolved]
  - Squamous cell carcinoma [Recovered/Resolved with Sequelae]

NARRATIVE: CASE EVENT DATE: 20170203
